FAERS Safety Report 8542601-5 (Version None)
Quarter: 2012Q3

REPORT INFORMATION
  Report Type: 
  Country: None (occurrence: None)
  Receive Date: 20120726
  Receipt Date: 20120723
  Transmission Date: 20120928
  Serious: Yes (Hospitalization, Other)
  Sender: FDA-Public Use
  Company Number: US-TEVA-350155USA

PATIENT
  Age: 21 Year
  Sex: Female

DRUGS (4)
  1. PREDNISONE [Suspect]
     Indication: ACUTE LYMPHOCYTIC LEUKAEMIA
     Dosage: UNSPECIFIED DOSAGE MODIFICATION
     Route: 065
  2. DAUNORUBICIN HCL [Suspect]
     Indication: ACUTE LYMPHOCYTIC LEUKAEMIA
     Dosage: UNSPECIFIED DOSAGE MODIFICATION
     Route: 065
  3. PEGASPARGASE [Suspect]
     Indication: ACUTE LYMPHOCYTIC LEUKAEMIA
     Dosage: UNSPECIFIED DOSAGE MODIFICATION
     Route: 065
  4. VINCRISTINE [Suspect]
     Indication: ACUTE LYMPHOCYTIC LEUKAEMIA
     Dosage: UNSPECIFIED DOSAGE MODIFICATION
     Route: 065

REACTIONS (12)
  - FATIGUE [None]
  - CHOLANGITIS [None]
  - NAUSEA [None]
  - ASTHENIA [None]
  - HEPATOTOXICITY [None]
  - MALNUTRITION [None]
  - ABDOMINAL PAIN UPPER [None]
  - HEPATIC STEATOSIS [None]
  - HYPERBILIRUBINAEMIA [None]
  - HYPERGLYCAEMIA [None]
  - PANCREATITIS [None]
  - CHOLELITHIASIS [None]
